FAERS Safety Report 8334227-3 (Version None)
Quarter: 2012Q2

REPORT INFORMATION
  Report Type: 
  Country: None (occurrence: None)
  Receive Date: 20120503
  Receipt Date: 20120426
  Transmission Date: 20120825
  Serious: Yes (Death)
  Sender: FDA-Public Use
  Company Number: JP-GLAXOSMITHKLINE-B0794271A

PATIENT
  Sex: Female

DRUGS (6)
  1. FLOLAN [Suspect]
     Indication: PULMONARY HYPERTENSION
     Route: 042
     Dates: start: 20120305, end: 20120405
  2. VOLIBRIS [Suspect]
     Indication: PULMONARY HYPERTENSION
     Dosage: 7.5MG PER DAY
     Route: 048
     Dates: start: 20120229
  3. ADCIRCA [Concomitant]
     Indication: PULMONARY HYPERTENSION
     Dosage: 40MG PER DAY
     Route: 048
     Dates: start: 20120226
  4. TOLVAPTAN [Concomitant]
     Dosage: 15MG PER DAY
     Route: 048
     Dates: start: 20120309
  5. HEPARIN SODIUM [Suspect]
  6. WARFARIN SODIUM [Suspect]
     Route: 048

REACTIONS (7)
  - INFECTION [None]
  - PULMONARY ALVEOLAR HAEMORRHAGE [None]
  - PULMONARY HYPERTENSION [None]
  - HAEMOPTYSIS [None]
  - PULMONARY VEIN OCCLUSION [None]
  - COMPUTERISED TOMOGRAM ABNORMAL [None]
  - DYSPNOEA [None]
